FAERS Safety Report 14785480 (Version 1)
Quarter: 2018Q2

REPORT INFORMATION
  Report Type: Report from Study
  Country: None (occurrence: US)
  Receive Date: 20180420
  Receipt Date: 20180420
  Transmission Date: 20180711
  Serious: Yes (Hospitalization, Other)
  Sender: FDA-Public Use
  Company Number: US-BAUSCH-BL-2018-011251

PATIENT
  Sex: Male
  Weight: 99.88 kg

DRUGS (1)
  1. XIFAXAN [Suspect]
     Active Substance: RIFAXIMIN
     Indication: LIVER DISORDER
     Route: 048
     Dates: start: 2013

REACTIONS (3)
  - Loss of consciousness [Recovered/Resolved]
  - Hospitalisation [Recovered/Resolved]
  - Ammonia increased [Recovered/Resolved]

NARRATIVE: CASE EVENT DATE: 2018
